FAERS Safety Report 5134024-6 (Version None)
Quarter: 2006Q4

REPORT INFORMATION
  Report Type: 
  Country: None (occurrence: None)
  Receive Date: 20061019
  Receipt Date: 20061006
  Transmission Date: 20070319
  Serious: Yes (Hospitalization)
  Sender: FDA-Public Use
  Company Number: 2006101778

PATIENT
  Age: 56 Year
  Sex: Male

DRUGS (6)
  1. SUTENT [Suspect]
     Indication: METASTATIC RENAL CELL CARCINOMA
     Dosage: SEE IMAGE, ORAL
     Route: 048
     Dates: start: 20060714
  2. SUTENT [Suspect]
     Indication: METASTATIC RENAL CELL CARCINOMA
     Dosage: SEE IMAGE, ORAL
     Route: 048
     Dates: start: 20060831
  3. LEVOTHYROXINE SODIUM [Concomitant]
  4. MEGACE [Concomitant]
  5. OXAZEPAM [Concomitant]
  6. NOVOHYDRAZIDE (HYDROCHLOROTHIAZIDE) [Concomitant]

REACTIONS (9)
  - ARTERIOSCLEROSIS [None]
  - CHEST PAIN [None]
  - DEHYDRATION [None]
  - DYSPHAGIA [None]
  - JAUNDICE [None]
  - LOWER RESPIRATORY TRACT INFECTION [None]
  - LUNG NEOPLASM [None]
  - PLEURAL EFFUSION [None]
  - THYROID FUNCTION TEST ABNORMAL [None]
